FAERS Safety Report 12496566 (Version 3)
Quarter: 2016Q2

REPORT INFORMATION
  Report Type: Spontaneous
  Country: US (occurrence: US)
  Receive Date: 20160624
  Receipt Date: 20160624
  Transmission Date: 20160815
  Serious: Yes (Other)
  Sender: FDA-Public Use
  Company Number: US-SA-2016SA088708

PATIENT
  Sex: Female

DRUGS (4)
  1. AUBAGIO [Suspect]
     Active Substance: TERIFLUNOMIDE
     Indication: MULTIPLE SCLEROSIS
     Route: 048
  2. ACYCLOVIR. [Concomitant]
     Active Substance: ACYCLOVIR
  3. NICOTINE. [Concomitant]
     Active Substance: NICOTINE
     Dosage: TRANSDERMAL SYS
  4. VITAMIN D [Suspect]
     Active Substance: CHOLECALCIFEROL
     Route: 065

REACTIONS (4)
  - Abdominal discomfort [Unknown]
  - Urinary tract infection [Unknown]
  - Dyspepsia [Unknown]
  - Diarrhoea [Unknown]
